FAERS Safety Report 15796289 (Version 1)
Quarter: 2019Q1

REPORT INFORMATION
  Report Type: Spontaneous
  Country: US (occurrence: US)
  Receive Date: 20190108
  Receipt Date: 20190108
  Transmission Date: 20190417
  Serious: Yes (Death, Hospitalization, Other)
  Sender: FDA-Public Use
  Company Number: US-ALEXION PHARMACEUTICALS INC.-A201817176

PATIENT
  Sex: Male

DRUGS (2)
  1. SOLIRIS [Suspect]
     Active Substance: ECULIZUMAB
     Indication: ATYPICAL HAEMOLYTIC URAEMIC SYNDROME
     Dosage: UNK
     Route: 065
  2. AMPHOTERICIN [Concomitant]
     Active Substance: AMPHOTERICIN B
     Indication: FUNGAL INFECTION
     Route: 065

REACTIONS (5)
  - Intestinal ischaemia [Fatal]
  - Multiple organ dysfunction syndrome [Fatal]
  - Candida infection [Unknown]
  - Condition aggravated [Fatal]
  - Mucormycosis [Unknown]
